FAERS Safety Report 9141059 (Version 1)
Quarter: 2013Q1

REPORT INFORMATION
  Report Type: Spontaneous
  Country: FR (occurrence: FR)
  Receive Date: 20130305
  Receipt Date: 20130305
  Transmission Date: 20140127
  Serious: Yes (Hospitalization, Other)
  Sender: FDA-Public Use
  Company Number: FR-BAXTER-2013BAX005560

PATIENT
  Age: 83 Year
  Sex: Male
  Weight: 80.3 kg

DRUGS (5)
  1. EXTRANEAL [Suspect]
     Indication: PERITONEAL DIALYSIS
     Route: 033
     Dates: start: 20120326
  2. BALANCE [Suspect]
     Indication: PERITONEAL DIALYSIS
     Route: 033
     Dates: start: 20120326
  3. CEFTRIAXONE [Suspect]
     Indication: LUNG DISORDER
     Route: 042
     Dates: start: 20130109, end: 20130118
  4. CEFTRIAXONE [Suspect]
     Route: 033
     Dates: start: 20130110, end: 20130124
  5. LEVOFLOXACIN [Suspect]
     Indication: LUNG DISORDER
     Route: 048
     Dates: start: 20130109, end: 20130111

REACTIONS (3)
  - Noninfectious peritonitis [Recovered/Resolved]
  - Lung disorder [Unknown]
  - Gastroenteritis [Unknown]
